FAERS Safety Report 19236516 (Version 2)
Quarter: 2021Q2

REPORT INFORMATION
  Report Type: Report from Study
  Country: None (occurrence: US)
  Receive Date: 20210510
  Receipt Date: 20210616
  Transmission Date: 20210717
  Serious: Yes (Hospitalization)
  Sender: FDA-Public Use
  Company Number: US-ABBVIE-21K-163-3892235-00

PATIENT
  Sex: Male

DRUGS (4)
  1. HUMIRA [Suspect]
     Active Substance: ADALIMUMAB
     Route: 058
     Dates: start: 20210318, end: 202103
  2. HUMIRA [Suspect]
     Active Substance: ADALIMUMAB
     Indication: PSORIASIS
     Route: 058
     Dates: start: 2017, end: 2020
  3. COVID?19 VACCINE [Concomitant]
     Indication: COVID-19 IMMUNISATION
     Route: 030
     Dates: start: 2021, end: 2021
  4. HUMIRA [Suspect]
     Active Substance: ADALIMUMAB
     Route: 058
     Dates: start: 2021

REACTIONS (11)
  - Staphylococcal infection [Unknown]
  - Psoriatic arthropathy [Unknown]
  - Intentional product misuse [Unknown]
  - Helplessness [Not Recovered/Not Resolved]
  - Peripheral swelling [Unknown]
  - Psoriasis [Unknown]
  - Self-consciousness [Not Recovered/Not Resolved]
  - Inflammation [Unknown]
  - Skin discolouration [Recovering/Resolving]
  - Pain in extremity [Unknown]
  - Pain [Unknown]
